FAERS Safety Report 4350391-5 (Version None)
Quarter: 2004Q2

REPORT INFORMATION
  Report Type: 
  Country: None (occurrence: None)
  Receive Date: 20040428
  Receipt Date: 20040428
  Transmission Date: 20050107
  Serious: Yes (Death)
  Sender: FDA-Public Use
  Company Number: None

PATIENT
  Age: 93 Year
  Sex: Female
  Weight: 104.3273 kg

DRUGS (1)
  1. FLEET'S PHOSHO-SODA [Suspect]
     Indication: COLONOSCOPY
     Dosage: 90 ML PO FOR 4 DOSES TOTAL
     Route: 048
     Dates: start: 20040406, end: 20040408

REACTIONS (9)
  - BRADYCARDIA [None]
  - CARDIAC ARREST [None]
  - CONVULSION [None]
  - HYPERNATRAEMIA [None]
  - HYPERPHOSPHATAEMIA [None]
  - HYPOTENSION [None]
  - LABORATORY TEST ABNORMAL [None]
  - METABOLIC ACIDOSIS [None]
  - RENAL FAILURE ACUTE [None]
